FAERS Safety Report 16342988 (Version 4)
Quarter: 2019Q2

REPORT INFORMATION
  Report Type: Report from Study
  Country: US (occurrence: US)
  Receive Date: 20190522
  Receipt Date: 20190621
  Transmission Date: 20190711
  Serious: Yes (Hospitalization, Other)
  Sender: FDA-Public Use
  Company Number: US-GILEAD-2019-0409182

PATIENT
  Age: 64 Year
  Sex: Female
  Weight: 62.13 kg

DRUGS (8)
  1. UPTRAVI [Suspect]
     Active Substance: SELEXIPAG
     Dosage: 600 UG
     Route: 048
     Dates: start: 20190520
  2. AMBRISENTAN [Suspect]
     Active Substance: AMBRISENTAN
     Indication: PRODUCT USED FOR UNKNOWN INDICATION
     Dosage: 10 MG, QD
     Route: 048
     Dates: start: 20180403
  3. XARELTO [Concomitant]
     Active Substance: RIVAROXABAN
  4. DULCOLAX (BISACODYL) [Concomitant]
     Active Substance: BISACODYL
  5. UPTRAVI [Suspect]
     Active Substance: SELEXIPAG
     Dosage: 800 UG
     Route: 048
  6. UPTRAVI [Suspect]
     Active Substance: SELEXIPAG
     Dosage: 400 UG
     Route: 048
     Dates: start: 20190603
  7. TADALAFIL. [Concomitant]
     Active Substance: TADALAFIL
  8. UPTRAVI [Suspect]
     Active Substance: SELEXIPAG
     Indication: PRODUCT USED FOR UNKNOWN INDICATION
     Dosage: 400 UG, QD
     Route: 048
     Dates: start: 201812

REACTIONS (15)
  - Haemoglobin decreased [Recovering/Resolving]
  - Limb discomfort [Not Recovered/Not Resolved]
  - Gait disturbance [Unknown]
  - Liver disorder [Not Recovered/Not Resolved]
  - Dyspnoea [Not Recovered/Not Resolved]
  - Transfusion [Unknown]
  - Vision blurred [Recovered/Resolved]
  - Insomnia [Not Recovered/Not Resolved]
  - Oedema [Unknown]
  - Dizziness [Recovered/Resolved]
  - Pain in jaw [Unknown]
  - Fatigue [Not Recovered/Not Resolved]
  - Presyncope [Recovered/Resolved]
  - Internal haemorrhage [Unknown]
  - Large intestinal haemorrhage [None]

NARRATIVE: CASE EVENT DATE: 20190520
